FAERS Safety Report 20262064 (Version 10)
Quarter: 2022Q3

REPORT INFORMATION
  Report Type: Report from Study
  Country: US (occurrence: US)
  Receive Date: 20211231
  Receipt Date: 20220831
  Transmission Date: 20221027
  Serious: No
  Sender: FDA-Public Use
  Company Number: US-NOVARTISTESTPH-NVSC2021US299820

PATIENT
  Sex: Male

DRUGS (3)
  1. ENTRESTO [Suspect]
     Active Substance: SACUBITRIL\VALSARTAN
     Indication: Product used for unknown indication
     Dosage: UNK
     Route: 065
     Dates: start: 20211213
  2. ENTRESTO [Suspect]
     Active Substance: SACUBITRIL\VALSARTAN
     Dosage: UNK
     Route: 065
  3. JARDIANCE [Concomitant]
     Active Substance: EMPAGLIFLOZIN
     Indication: Product used for unknown indication
     Dosage: UNK
     Route: 065

REACTIONS (15)
  - Hypertension [Recovering/Resolving]
  - Weight fluctuation [Recovering/Resolving]
  - Dyspnoea [Recovering/Resolving]
  - Fluid retention [Unknown]
  - Anxiety [Unknown]
  - Seasonal allergy [Unknown]
  - Blood bilirubin increased [Unknown]
  - Ejection fraction decreased [Unknown]
  - Sinus disorder [Unknown]
  - Constipation [Unknown]
  - Neuralgia [Unknown]
  - Nerve compression [Unknown]
  - Night sweats [Unknown]
  - Dizziness [Unknown]
  - Cough [Unknown]
